FAERS Safety Report 6191755-7 (Version None)
Quarter: 2009Q2

REPORT INFORMATION
  Report Type: 
  Country: None (occurrence: None)
  Receive Date: 20090515
  Receipt Date: 20090505
  Transmission Date: 20091009
  Serious: Yes (Hospitalization)
  Sender: FDA-Public Use
  Company Number: FR-PFIZER INC-2009207641

PATIENT
  Age: 83 Year

DRUGS (3)
  1. TRIFLUCAN [Suspect]
     Indication: FUNGAL OESOPHAGITIS
     Dosage: 1 DF, 1X/DAY
     Route: 048
     Dates: start: 20090314, end: 20090320
  2. FUNGIZONE [Concomitant]
     Indication: FUNGAL OESOPHAGITIS
     Dosage: UNK
     Route: 048
     Dates: start: 20090314, end: 20090320
  3. AUGMENTIN '125' [Concomitant]
     Dosage: UNK
     Dates: start: 20090309, end: 20090323

REACTIONS (1)
  - PANCYTOPENIA [None]
